FAERS Safety Report 4905061-9 (Version None)
Quarter: 2006Q1

REPORT INFORMATION
  Report Type: 
  Country: None (occurrence: None)
  Receive Date: 20060208
  Receipt Date: 20051109
  Transmission Date: 20060701
  Serious: No
  Sender: FDA-Public Use
  Company Number: US-GLAXOSMITHKLINE-A0581616A

PATIENT
  Age: 16 Year
  Sex: Female

DRUGS (3)
  1. PAXIL [Suspect]
     Indication: IRRITABLE BOWEL SYNDROME
     Dosage: 20MG PER DAY
     Route: 048
     Dates: start: 20020801
  2. PAXIL CR [Suspect]
     Indication: IRRITABLE BOWEL SYNDROME
     Route: 048
  3. PAROXETINE HCL [Suspect]
     Indication: IRRITABLE BOWEL SYNDROME
     Dosage: 20MG PER DAY
     Route: 048
     Dates: start: 20051107

REACTIONS (4)
  - ABDOMINAL PAIN UPPER [None]
  - DEPRESSION [None]
  - DIARRHOEA [None]
  - DRUG INEFFECTIVE [None]
